FAERS Safety Report 7277624-X (Version None)
Quarter: 2011Q1

REPORT INFORMATION
  Report Type: 
  Country: None (occurrence: None)
  Receive Date: 20110202
  Receipt Date: 20110202
  Transmission Date: 20110831
  Serious: Yes (Other)
  Sender: FDA-Public Use
  Company Number: None

PATIENT
  Age: 59 Year
  Sex: Male
  Weight: 97.5234 kg

DRUGS (2)
  1. SIMVASTATIN [Suspect]
     Dosage: 20 MG 1 PER DAY
  2. LIPITOR [Suspect]
     Dosage: 20 MG 1 PER DAY

REACTIONS (2)
  - ARTHRALGIA [None]
  - MYALGIA [None]
